FAERS Safety Report 4588256-6 (Version None)
Quarter: 2005Q1

REPORT INFORMATION
  Report Type: 
  Country: None (occurrence: None)
  Receive Date: 20050216
  Receipt Date: 20050207
  Transmission Date: 20050727
  Serious: Yes (Hospitalization)
  Sender: FDA-Public Use
  Company Number: K200500200

PATIENT
  Age: 72 Year
  Sex: 0

DRUGS (3)
  1. ALTACE [Suspect]
     Dates: start: 20040101
  2. REOPRO [Suspect]
     Indication: ACUTE MYOCARDIAL INFARCTION
     Dosage: INTRAVENOUS
     Route: 042
  3. RETEPLASE (RETEPLASE) POWDER (EXCEPT [DPO]) [Suspect]
     Indication: ACUTE MYOCARDIAL INFARCTION
     Dosage: INTRAVENOUS
     Route: 042

REACTIONS (2)
  - CARDIAC FAILURE [None]
  - DERMATITIS ALLERGIC [None]
